FAERS Safety Report 4901186-2 (Version None)
Quarter: 2006Q1

REPORT INFORMATION
  Report Type: 
  Country: None (occurrence: None)
  Receive Date: 20060201
  Receipt Date: 20060119
  Transmission Date: 20060701
  Serious: Yes (Death)
  Sender: FDA-Public Use
  Company Number: 2006011106

PATIENT
  Age: 36 Year
  Sex: Female

DRUGS (8)
  1. IDARUBICIN HCL [Suspect]
     Indication: NON-HODGKIN'S LYMPHOMA
     Dosage: 10 MG/M2, DAYS 1-2
  2. CISPLATIN [Suspect]
     Indication: NON-HODGKIN'S LYMPHOMA
     Dosage: 100 MG/M2, DAY 1
  3. ETOPOSIDE [Suspect]
     Indication: NON-HODGKIN'S LYMPHOMA
     Dosage: 150 MG/M2, DAYS 1-5
  4. METHOTREXATE [Suspect]
     Indication: NON-HODGKIN'S LYMPHOMA
     Dosage: INTRATHECAL
     Route: 037
  5. IFOSFAMIDE [Suspect]
     Indication: NON-HODGKIN'S LYMPHOMA
     Dosage: 1000 MG/M2
  6. CYTARABINE [Suspect]
     Indication: NON-HODGKIN'S LYMPHOMA
     Dosage: 2000 MG/M2, EVERY 121 HOURS ON DAY 2
  7. MESNA [Suspect]
     Indication: NON-HODGKIN'S LYMPHOMA
     Dosage: 600 MG/M2, 5 DAYS
  8. DEXAMETHASONE [Suspect]
     Indication: NON-HODGKIN'S LYMPHOMA
     Dosage: 40 MG 4 DAYS

REACTIONS (14)
  - BLINDNESS CORTICAL [None]
  - BLOOD CREATININE INCREASED [None]
  - BLOOD PRESSURE INCREASED [None]
  - BLOOD URIC ACID INCREASED [None]
  - CONVULSION [None]
  - DISEASE PROGRESSION [None]
  - DISORIENTATION [None]
  - GRAND MAL CONVULSION [None]
  - HAEMODIALYSIS [None]
  - HALLUCINATION [None]
  - LEUKOENCEPHALOPATHY [None]
  - OPTIC DISC DISORDER [None]
  - STUPOR [None]
  - SWELLING [None]
